FAERS Safety Report 25206657 (Version 3)
Quarter: 2025Q2

REPORT INFORMATION
  Report Type: Spontaneous
  Country: NL (occurrence: NL)
  Receive Date: 20250417
  Receipt Date: 20250501
  Transmission Date: 20250716
  Serious: Yes (Death, Life-Threatening, Hospitalization, Other)
  Sender: AUROBINDO
  Company Number: NL-MLMSERVICE-20250326-PI457772-00275-1

PATIENT
  Age: 23 Year
  Sex: Male

DRUGS (5)
  1. QUETIAPINE [Interacting]
     Active Substance: QUETIAPINE
     Indication: Product used for unknown indication
     Route: 065
  2. OXYCODONE [Interacting]
     Active Substance: OXYCODONE
     Indication: Product used for unknown indication
     Route: 065
  3. COCAINE [Suspect]
     Active Substance: COCAINE
     Indication: Product used for unknown indication
     Route: 065
  4. ALCOHOL [Suspect]
     Active Substance: ALCOHOL
     Indication: Product used for unknown indication
     Route: 065
  5. GRAPEFRUIT [Suspect]
     Active Substance: GRAPEFRUIT
     Indication: Product used for unknown indication
     Route: 065

REACTIONS (23)
  - Acute kidney injury [Fatal]
  - Hyperkalaemia [Fatal]
  - Rhabdomyolysis [Fatal]
  - Hyperlactacidaemia [Fatal]
  - Toxic leukoencephalopathy [Fatal]
  - Shock [Fatal]
  - Coma [Fatal]
  - Cerebellar infarction [Fatal]
  - Brainstem compression [Fatal]
  - Brain herniation [Fatal]
  - Renal failure [Fatal]
  - Substance abuse [Fatal]
  - Hepatic failure [Fatal]
  - Hypertransaminasaemia [Fatal]
  - Food interaction [Fatal]
  - Drug interaction [Fatal]
  - Overdose [Fatal]
  - Multiple organ dysfunction syndrome [Fatal]
  - Depressed level of consciousness [Unknown]
  - Unresponsive to stimuli [Unknown]
  - Hypoxia [Unknown]
  - Miosis [Unknown]
  - Respiration abnormal [Unknown]
